FAERS Safety Report 19307630 (Version 1)
Quarter: 2021Q2

REPORT INFORMATION
  Report Type: Spontaneous
  Country: US (occurrence: US)
  Receive Date: 20210525
  Receipt Date: 20210525
  Transmission Date: 20210717
  Serious: Yes (Other)
  Sender: FDA-Public Use
  Company Number: US-PURDUE-USA-2021-0233946

PATIENT
  Sex: Male
  Weight: 83.9 kg

DRUGS (1)
  1. OXYCONTIN [Suspect]
     Active Substance: OXYCODONE HYDROCHLORIDE
     Indication: LIMB OPERATION
     Dosage: 15 MG, UNK
     Route: 048

REACTIONS (5)
  - Drug withdrawal syndrome [Unknown]
  - Hallucination [Unknown]
  - Pyrexia [Unknown]
  - Pain [Unknown]
  - Euphoric mood [Unknown]
